FAERS Safety Report 10028587 (Version 1)
Quarter: 2014Q1

REPORT INFORMATION
  Report Type: Spontaneous
  Country: IT (occurrence: IT)
  Receive Date: 20140321
  Receipt Date: 20140321
  Transmission Date: 20141002
  Serious: Yes (Hospitalization)
  Sender: FDA-Public Use
  Company Number: PHHY2014IT031655

PATIENT
  Sex: Female

DRUGS (8)
  1. TOLEP [Suspect]
     Dosage: 6 DF, TOTAL
     Route: 048
     Dates: start: 20130304, end: 20130304
  2. DEPAKIN [Suspect]
     Dosage: 1 DF, TOTAL
     Route: 048
     Dates: start: 20130304, end: 20130304
  3. ENALAPRIL [Suspect]
     Dosage: 100 MG, TOTAL
     Route: 048
     Dates: start: 20130304, end: 20130304
  4. CITALOPRAM [Suspect]
     Dosage: 15 ML, TOTAL
     Route: 048
     Dates: start: 20130304, end: 20130304
  5. CONTRAMAL [Suspect]
     Dosage: 30 ML, TOTAL
     Route: 048
     Dates: start: 20130304, end: 20130304
  6. TORA-DOL [Suspect]
     Dosage: 20 ML, TOTAL
     Route: 048
     Dates: start: 20130304, end: 20130304
  7. PARACODINA [Suspect]
     Dosage: 15 G, TOTAL
     Route: 048
     Dates: start: 20130304, end: 20130304
  8. TRITTICO [Suspect]
     Dosage: 30 ML, TOTAL
     Route: 048
     Dates: start: 20130304, end: 20130304

REACTIONS (1)
  - Coma [Recovered/Resolved]
